FAERS Safety Report 9671906 (Version 1)
Quarter: 2013Q4

REPORT INFORMATION
  Report Type: Spontaneous
  Country: US (occurrence: US)
  Receive Date: 20131106
  Receipt Date: 20131106
  Transmission Date: 20140711
  Serious: Yes (Death)
  Sender: FDA-Public Use
  Company Number: US-SA-2013SA112417

PATIENT
  Sex: Male

DRUGS (5)
  1. AMBIEN [Suspect]
     Route: 065
  2. METHADONE [Suspect]
     Route: 065
  3. ZOLOFT [Suspect]
     Route: 065
  4. OXYCODONE [Suspect]
     Route: 065
  5. ALL OTHER THERAPEUTIC PRODUCTS [Concomitant]

REACTIONS (2)
  - Completed suicide [Fatal]
  - Overdose [Unknown]
